FAERS Safety Report 25006129 (Version 3)
Quarter: 2025Q2

REPORT INFORMATION
  Report Type: Spontaneous
  Country: US (occurrence: US)
  Receive Date: 20250224
  Receipt Date: 20250424
  Transmission Date: 20250716
  Serious: Yes (Other)
  Sender: PFIZER
  Company Number: US-PFIZER INC-202500040662

PATIENT
  Age: 60 Year
  Sex: Female
  Weight: 62.6 kg

DRUGS (1)
  1. NURTEC ODT [Suspect]
     Active Substance: RIMEGEPANT SULFATE
     Indication: Headache
     Route: 048
     Dates: start: 20241218

REACTIONS (5)
  - Depression [Unknown]
  - Off label use [Unknown]
  - Fall [Unknown]
  - Restless legs syndrome [Unknown]
  - Movement disorder [Unknown]

NARRATIVE: CASE EVENT DATE: 20250101
